FAERS Safety Report 8107596-7 (Version None)
Quarter: 2012Q1

REPORT INFORMATION
  Report Type: 
  Country: None (occurrence: None)
  Receive Date: 20120202
  Receipt Date: 20120130
  Transmission Date: 20120608
  Serious: No
  Sender: FDA-Public Use
  Company Number: US-PFIZER INC-2012008647

PATIENT
  Sex: Male
  Weight: 106 kg

DRUGS (3)
  1. CHANTIX [Suspect]
     Dosage: 0.5 MG, 2X/DAY
     Route: 048
     Dates: start: 20120104, end: 20120107
  2. CHANTIX [Suspect]
     Indication: SMOKING CESSATION THERAPY
     Dosage: 0.50 MG DAILY
     Route: 048
     Dates: start: 20120101, end: 20120103
  3. CHANTIX [Suspect]
     Dosage: 1 MG, 2X/DAY
     Route: 048
     Dates: start: 20120108, end: 20120110

REACTIONS (3)
  - ABNORMAL DREAMS [None]
  - FATIGUE [None]
  - SLEEP DISORDER [None]
